FAERS Safety Report 19506978 (Version 1)
Quarter: 2021Q3

REPORT INFORMATION
  Report Type: Spontaneous
  Country: FI (occurrence: FI)
  Receive Date: 20210708
  Receipt Date: 20210708
  Transmission Date: 20211014
  Serious: Yes (Life-Threatening)
  Sender: FDA-Public Use
  Company Number: FI-JNJFOC-20210666113

PATIENT
  Sex: Male

DRUGS (3)
  1. XEPLION [Suspect]
     Active Substance: PALIPERIDONE PALMITATE
     Indication: PRODUCT USED FOR UNKNOWN INDICATION
     Route: 030
     Dates: start: 20210420
  2. XEPLION [Suspect]
     Active Substance: PALIPERIDONE PALMITATE
  3. XEPLION [Suspect]
     Active Substance: PALIPERIDONE PALMITATE

REACTIONS (19)
  - Insomnia [Unknown]
  - Somnolence [Unknown]
  - Loss of libido [Unknown]
  - Oedema [Unknown]
  - Hyperaesthesia [Unknown]
  - Myalgia [Unknown]
  - Feeling hot [Unknown]
  - Suicidal ideation [Unknown]
  - Apathy [Unknown]
  - Arthropathy [Unknown]
  - Emotional poverty [Unknown]
  - Photopsia [Unknown]
  - Arthralgia [Unknown]
  - Boredom [Unknown]
  - Visual impairment [Unknown]
  - Feeling abnormal [Unknown]
  - Aggression [Unknown]
  - Erythema [Unknown]
  - Hostility [Unknown]

NARRATIVE: CASE EVENT DATE: 202104
